FAERS Safety Report 8300808-6 (Version None)
Quarter: 2012Q2

REPORT INFORMATION
  Report Type: 
  Country: None (occurrence: None)
  Receive Date: 20120420
  Receipt Date: 20120419
  Transmission Date: 20120825
  Serious: Yes (Disabling)
  Sender: FDA-Public Use
  Company Number: PHHY2010IT26264

PATIENT
  Sex: Female

DRUGS (6)
  1. ZOMETA [Suspect]
     Dosage: 4 MG, UNK
     Route: 042
     Dates: start: 20070101, end: 20080601
  2. ANTIHYPERTENSIVES [Concomitant]
  3. ZOMETA [Suspect]
     Indication: METASTASES TO BONE
     Dosage: 4 MG, UNK
     Route: 042
     Dates: start: 20020101, end: 20041231
  4. ASPIRIN [Concomitant]
  5. INSULIN [Concomitant]
  6. ANTIDEPRESSANTS [Concomitant]

REACTIONS (2)
  - OSTEONECROSIS OF JAW [None]
  - JAW FRACTURE [None]
